FAERS Safety Report 8313465-X (Version None)
Quarter: 2012Q2

REPORT INFORMATION
  Report Type: 
  Country: None (occurrence: None)
  Receive Date: 20120426
  Receipt Date: 20120418
  Transmission Date: 20120825
  Serious: Yes (Other)
  Sender: FDA-Public Use
  Company Number: US-US-EMD SERONO, INC.-7127196

PATIENT
  Sex: Female

DRUGS (2)
  1. REBIF [Suspect]
     Indication: PRODUCT USED FOR UNKNOWN INDICATION
     Route: 058
     Dates: start: 20081009, end: 20120101
  2. REBIF [Suspect]
     Route: 058
     Dates: start: 20120101

REACTIONS (3)
  - LIVER FUNCTION TEST ABNORMAL [None]
  - MIGRAINE [None]
  - ARTHRITIS [None]
